FAERS Safety Report 24823227 (Version 1)
Quarter: 2025Q1

REPORT INFORMATION
  Report Type: Spontaneous
  Country: BE (occurrence: BE)
  Receive Date: 20250109
  Receipt Date: 20250109
  Transmission Date: 20250408
  Serious: Yes (Other)
  Sender: ABBVIE
  Company Number: BE-ABBVIE-6074560

PATIENT
  Age: 66 Year

DRUGS (1)
  1. RINVOQ [Suspect]
     Active Substance: UPADACITINIB
     Indication: Product used for unknown indication
     Route: 048

REACTIONS (10)
  - Coronary artery occlusion [Unknown]
  - Fluid retention [Unknown]
  - Thyroid disorder [Unknown]
  - Pyrexia [Unknown]
  - Cytomegalovirus infection [Unknown]
  - Hypercholesterolaemia [Unknown]
  - Hypertriglyceridaemia [Unknown]
  - Traumatic haematoma [Unknown]
  - Myocardial infarction [Unknown]
  - Joint swelling [Unknown]
